FAERS Safety Report 7283161-9 (Version None)
Quarter: 2011Q1

REPORT INFORMATION
  Report Type: 
  Country: None (occurrence: None)
  Receive Date: 20110209
  Receipt Date: 20110203
  Transmission Date: 20110831
  Serious: Yes (Hospitalization)
  Sender: FDA-Public Use
  Company Number: GB-JNJFOC-20110107025

PATIENT
  Age: 59 Year
  Sex: Female

DRUGS (2)
  1. ACETAMINOPHEN [Suspect]
     Indication: PRODUCT USED FOR UNKNOWN INDICATION
     Route: 048
  2. ACETAMINOPHEN [Suspect]
     Route: 048

REACTIONS (4)
  - METABOLIC ACIDOSIS [None]
  - HEPATORENAL SYNDROME [None]
  - OVERDOSE [None]
  - LOSS OF CONSCIOUSNESS [None]
